FAERS Safety Report 7204192-0 (Version None)
Quarter: 2010Q4

REPORT INFORMATION
  Report Type: 
  Country: None (occurrence: None)
  Receive Date: 20101220
  Receipt Date: 20101203
  Transmission Date: 20110411
  Serious: Yes (Hospitalization)
  Sender: FDA-Public Use
  Company Number: 015714

PATIENT
  Sex: Male

DRUGS (9)
  1. CERTOLIZUMAB PEGOL (CERTOLIZUMAB PEGOL) [Suspect]
     Indication: RHEUMATOID ARTHRITIS
     Dosage: SEE IMAGE
     Route: 058
     Dates: start: 20091112, end: 20100218
  2. CERTOLIZUMAB PEGOL (CERTOLIZUMAB PEGOL) [Suspect]
     Indication: RHEUMATOID ARTHRITIS
     Dosage: SEE IMAGE
     Route: 058
     Dates: start: 20100304
  3. CERTOLIZUMAB PEGOL (CERTOLIZUMAB PEGOL) [Suspect]
     Indication: RHEUMATOID ARTHRITIS
     Dosage: SEE IMAGE
     Route: 058
     Dates: start: 20100722
  4. METHOTREXATE [Concomitant]
  5. LANSOPRAZOLE [Concomitant]
  6. AMLODIPINE BESYLATE [Concomitant]
  7. CANDESARTAN CILEXETIL [Concomitant]
  8. RISEDRONATE SODIUM [Concomitant]
  9. MELOXICAM [Concomitant]

REACTIONS (2)
  - BRONCHITIS [None]
  - DECREASED APPETITE [None]
